FAERS Safety Report 20759675 (Version 1)
Quarter: 2022Q2

REPORT INFORMATION
  Report Type: Report from Study
  Country: US (occurrence: US)
  Receive Date: 20220427
  Receipt Date: 20220427
  Transmission Date: 20220721
  Serious: Yes (Other)
  Sender: FDA-Public Use
  Company Number: US-JAZZ-2022-US-005787

PATIENT
  Sex: Female

DRUGS (4)
  1. XYREM [Suspect]
     Active Substance: SODIUM OXYBATE
     Indication: Narcolepsy
     Dosage: UNK
     Route: 048
     Dates: start: 20220223
  2. XYREM [Suspect]
     Active Substance: SODIUM OXYBATE
     Indication: Cataplexy
  3. EMGALITY [Concomitant]
     Active Substance: GALCANEZUMAB-GNLM
     Indication: Product used for unknown indication
     Dosage: INJECT 1 MG SUBCUT ONCE MONTHLY BEGINNING THE SECOND MONTH
     Route: 058
     Dates: start: 20210818
  4. ZOMIG [Concomitant]
     Active Substance: ZOLMITRIPTAN
     Indication: Migraine
     Dosage: 1 TABLET BY MOUTH DAILY AS NEEDED FOR MIGRAINE MAY REPEAT DOSE X 1IN 2 HRS, MAX 2-3 DAYS PER WEEK
     Route: 048
     Dates: start: 20210818

REACTIONS (4)
  - Hypoxia [Unknown]
  - Limb discomfort [Unknown]
  - Chest discomfort [Unknown]
  - Wheezing [Unknown]

NARRATIVE: CASE EVENT DATE: 20220101
